FAERS Safety Report 8164997-9 (Version None)
Quarter: 2012Q1

REPORT INFORMATION
  Report Type: 
  Country: None (occurrence: None)
  Receive Date: 20120227
  Receipt Date: 20120213
  Transmission Date: 20120608
  Serious: Yes (Other)
  Sender: FDA-Public Use
  Company Number: GB-AMGEN-GBRSP2012008795

PATIENT
  Age: 55 Year
  Sex: Male

DRUGS (2)
  1. DOVOBET [Concomitant]
     Dosage: UNK
     Route: 061
  2. ETANERCEPT [Suspect]
     Indication: PSORIASIS
     Dosage: UNK
     Dates: start: 20090601, end: 20110601

REACTIONS (3)
  - GAIT DISTURBANCE [None]
  - BALANCE DISORDER [None]
  - NERVOUS SYSTEM DISORDER [None]
